FAERS Safety Report 7874643-7 (Version None)
Quarter: 2011Q4

REPORT INFORMATION
  Report Type: 
  Country: None (occurrence: None)
  Receive Date: 20111031
  Receipt Date: 20111020
  Transmission Date: 20120403
  Serious: No
  Sender: FDA-Public Use
  Company Number: US-JNJFOC-20111008605

PATIENT
  Sex: Female
  Weight: 56.25 kg

DRUGS (16)
  1. AXID [Concomitant]
     Indication: GASTROOESOPHAGEAL REFLUX DISEASE
     Route: 048
  2. MIRALAX [Concomitant]
     Indication: PRODUCT USED FOR UNKNOWN INDICATION
     Route: 048
  3. FENTANYL-100 [Suspect]
     Indication: PAIN
     Dosage: NDC NUMBER: 0781-7241-55
     Route: 062
     Dates: start: 20111014
  4. NORVASC [Concomitant]
     Indication: HYPERTENSION
     Route: 048
  5. MULTAQ [Concomitant]
     Indication: ATRIAL FIBRILLATION
     Route: 048
     Dates: start: 20100101
  6. VITAMIN D [Concomitant]
     Indication: MEDICAL DIET
     Route: 048
  7. FENTANYL-100 [Suspect]
     Indication: SPINAL FRACTURE
     Dosage: NDC NUMBER: 0781-7241-55
     Route: 062
     Dates: start: 20111014
  8. LASIX [Concomitant]
     Indication: JOINT SWELLING
     Route: 048
     Dates: start: 20090101
  9. TOPROL-XL [Concomitant]
     Indication: ATRIAL FIBRILLATION
     Route: 048
  10. SIMVASTATIN [Concomitant]
     Indication: BLOOD CHOLESTEROL INCREASED
     Route: 048
  11. FORTEO [Concomitant]
     Indication: OSTEOPOROSIS
     Dosage: START DATE SPECIFIED AS: U-MAR-20.
     Route: 058
  12. TYLENOL-500 [Concomitant]
     Indication: PAIN
     Dosage: AS NEEDED
     Route: 048
  13. WARFARIN SODIUM [Concomitant]
     Indication: ANTICOAGULANT THERAPY
     Dosage: DOSE VARIES
     Route: 048
     Dates: start: 20090101
  14. SYNTHROID [Concomitant]
     Indication: THYROID DISORDER
     Route: 048
  15. COZAAR [Concomitant]
     Indication: HYPERTENSION
     Route: 048
  16. CALCIUM CARBONATE [Concomitant]
     Indication: MEDICAL DIET
     Route: 048

REACTIONS (4)
  - DRUG ADMINISTERED AT INAPPROPRIATE SITE [None]
  - PRODUCT QUALITY ISSUE [None]
  - DRY MOUTH [None]
  - HYPERHIDROSIS [None]
